FAERS Safety Report 23875769 (Version 4)
Quarter: 2024Q4

REPORT INFORMATION
  Report Type: Spontaneous
  Country: US (occurrence: US)
  Receive Date: 20240520
  Receipt Date: 20241217
  Transmission Date: 20250114
  Serious: No
  Sender: SANOFI AVENTIS
  Company Number: US-SA-SAC20240511000507

PATIENT
  Age: 49 Year
  Sex: Female
  Weight: 92.971 kg

DRUGS (15)
  1. DUPIXENT [Suspect]
     Active Substance: DUPILUMAB
     Indication: Asthma
     Dosage: 200 MG, QOW
     Route: 058
  2. DUPIXENT [Suspect]
     Active Substance: DUPILUMAB
     Indication: Asthma
     Dosage: 300 MG, QOW
     Route: 058
  3. ALBUTEROL SULFATE [Concomitant]
     Active Substance: ALBUTEROL SULFATE
     Dosage: UNK
  4. SINGULAIR [Concomitant]
     Active Substance: MONTELUKAST SODIUM
     Dosage: UNK
  5. WELLBUTRIN [Concomitant]
     Active Substance: BUPROPION HYDROCHLORIDE
     Dosage: WELLBUTRIN SR 100 MG TAB SR 12H
  6. PREVACID [Concomitant]
     Active Substance: LANSOPRAZOLE
     Dosage: UNK
  7. SPIRIVA [Concomitant]
     Active Substance: TIOTROPIUM BROMIDE MONOHYDRATE
     Dosage: SPIRIVA HANDIHALER 18 MCG CAP W/DEV,
  8. DULERA [Concomitant]
     Active Substance: FORMOTEROL FUMARATE DIHYDRATE\MOMETASONE FUROATE
     Dosage: DULERA 100-5 MCG HFA AER AD
  9. ZINC [Concomitant]
     Active Substance: ZINC
     Dosage: ZINC-15 66 MG TABLET
  10. QUERCETIN [Concomitant]
     Active Substance: QUERCETIN
     Dosage: UNK
  11. IRON [Concomitant]
     Active Substance: IRON
     Dosage: IRON 159(45)MG TABLET ER,
  12. VITAMIN D NOS [Concomitant]
     Active Substance: CHOLECALCIFEROL\ERGOCALCIFEROL
     Dosage: VITAMIN D-400 10 MCG TABLET
  13. ZYRTEC [Concomitant]
     Active Substance: CETIRIZINE HYDROCHLORIDE
     Dosage: UNK
  14. PEPCID [Concomitant]
     Active Substance: FAMOTIDINE
     Dosage: UNK
  15. ASMANEX HFA [Concomitant]
     Active Substance: MOMETASONE FUROATE

REACTIONS (7)
  - Bronchitis [Recovered/Resolved]
  - Wheezing [Recovered/Resolved]
  - Dyspnoea [Recovered/Resolved]
  - Nasal congestion [Recovered/Resolved]
  - Pyrexia [Recovered/Resolved]
  - Accidental exposure to product [Unknown]
  - Exposure via skin contact [Unknown]

NARRATIVE: CASE EVENT DATE: 20240301
